FAERS Safety Report 21611587 (Version 2)
Quarter: 2022Q4

REPORT INFORMATION
  Report Type: Spontaneous
  Country: US (occurrence: US)
  Receive Date: 20221117
  Receipt Date: 20221204
  Transmission Date: 20230113
  Serious: No
  Sender: FDA-Public Use
  Company Number: US-JNJFOC-20221132002

PATIENT
  Age: 53 Year
  Sex: Female

DRUGS (1)
  1. SPRAVATO [Suspect]
     Active Substance: ESKETAMINE
     Indication: Major depression
     Route: 065
     Dates: start: 20221104

REACTIONS (4)
  - Dissociative disorder [Unknown]
  - Fear [Unknown]
  - Vertigo [Unknown]
  - Feeling drunk [Unknown]

NARRATIVE: CASE EVENT DATE: 20221104
